FAERS Safety Report 5035351-3 (Version None)
Quarter: 2006Q2

REPORT INFORMATION
  Report Type: 
  Country: None (occurrence: None)
  Receive Date: 20060627
  Receipt Date: 20060619
  Transmission Date: 20061013
  Serious: Yes (Hospitalization)
  Sender: FDA-Public Use
  Company Number: FR-AVENTIS-200612225FR

PATIENT
  Age: 93 Year
  Sex: Female

DRUGS (5)
  1. LASILIX [Suspect]
     Route: 048
  2. AMLOR [Suspect]
     Route: 048
  3. DISCOTRINE [Concomitant]
  4. VASTAREL [Concomitant]
  5. DEROXAT [Concomitant]

REACTIONS (5)
  - BLOOD GLUCOSE INCREASED [None]
  - HYPERSOMNIA [None]
  - HYPOGLYCAEMIA [None]
  - HYPOTENSION [None]
  - SOMNOLENCE [None]
